FAERS Safety Report 6446211-5 (Version None)
Quarter: 2009Q4

REPORT INFORMATION
  Report Type: 
  Country: None (occurrence: None)
  Receive Date: 20091119
  Receipt Date: 20091109
  Transmission Date: 20100525
  Serious: Yes (Hospitalization)
  Sender: FDA-Public Use
  Company Number: AU-JNJFOC-20090904483

PATIENT
  Sex: Male
  Weight: 86 kg

DRUGS (13)
  1. BLINDED; GOLIMUMA [Suspect]
     Route: 058
  2. BLINDED; GOLIMUMA [Suspect]
     Route: 058
  3. BLINDED; GOLIMUMA [Suspect]
     Route: 058
  4. BLINDED; GOLIMUMA [Suspect]
     Indication: COLITIS ULCERATIVE
     Route: 058
  5. PLACEBO [Suspect]
     Route: 058
  6. PLACEBO [Suspect]
     Route: 058
  7. PLACEBO [Suspect]
     Route: 058
  8. PLACEBO [Suspect]
     Indication: COLITIS ULCERATIVE
     Route: 058
  9. MESALAZINE [Concomitant]
     Indication: COLITIS ULCERATIVE
     Route: 048
  10. PREDNISONE [Concomitant]
     Indication: COLITIS ULCERATIVE
     Route: 048
  11. WARFARIN SODIUM [Concomitant]
     Route: 058
  12. CALTRATE [Concomitant]
     Indication: OSTEOPOROSIS PROPHYLAXIS
     Route: 048
  13. IRON POLYMALTOSE [Concomitant]
     Route: 042

REACTIONS (1)
  - COLITIS ULCERATIVE [None]
